FAERS Safety Report 11928264 (Version 5)
Quarter: 2016Q2

REPORT INFORMATION
  Report Type: Spontaneous
  Country: JP (occurrence: JP)
  Receive Date: 20160119
  Receipt Date: 20160531
  Transmission Date: 20160815
  Serious: Yes (Death, Life-Threatening, Disabling, Other)
  Sender: FDA-Public Use
  Company Number: JP-BRISTOL-MYERS SQUIBB COMPANY-BMS-2016-002025

PATIENT
  Age: 71 Year
  Sex: Male
  Weight: 86 kg

DRUGS (3)
  1. ELIQUIS [Suspect]
     Active Substance: APIXABAN
     Indication: CEREBROVASCULAR ACCIDENT PROPHYLAXIS
     Dosage: 2.5 MG, BID
     Route: 048
     Dates: start: 20151221, end: 20151228
  2. BEPRIDIL HYDROCHLORIDE MONOHYDRATE [Suspect]
     Active Substance: BEPRIDIL HYDROCHLORIDE
     Indication: PRODUCT USED FOR UNKNOWN INDICATION
     Route: 065
  3. HEPARIN [Suspect]
     Active Substance: HEPARIN SODIUM
     Indication: PRODUCT USED FOR UNKNOWN INDICATION
     Route: 065

REACTIONS (9)
  - Subdural haematoma [Recovered/Resolved with Sequelae]
  - Transfusion [Unknown]
  - Pneumonia [Unknown]
  - Respiratory failure [Unknown]
  - Haemodialysis [Unknown]
  - Peritoneal dialysis [Unknown]
  - Prescribed underdose [Unknown]
  - Sepsis [Fatal]
  - Tracheostomy [Unknown]

NARRATIVE: CASE EVENT DATE: 20160213
